FAERS Safety Report 11917146 (Version 1)
Quarter: 2016Q1

REPORT INFORMATION
  Report Type: Spontaneous
  Country: LK (occurrence: LK)
  Receive Date: 20160114
  Receipt Date: 20160114
  Transmission Date: 20160526
  Serious: Yes (Other)
  Sender: FDA-Public Use
  Company Number: LK-BRISTOL-MYERS SQUIBB COMPANY-BMS-2015-093399

PATIENT
  Age: 59 Year
  Sex: Male

DRUGS (1)
  1. WARFARIN SODIUM. [Suspect]
     Active Substance: WARFARIN SODIUM
     Indication: CARDIAC ANEURYSM
     Route: 065

REACTIONS (3)
  - Haemosiderosis [Unknown]
  - Haematuria [Unknown]
  - Haemoptysis [Unknown]
